FAERS Safety Report 11258934 (Version 1)
Quarter: 2015Q3

REPORT INFORMATION
  Report Type: Report from Study
  Country: US (occurrence: US)
  Receive Date: 20150710
  Receipt Date: 20150710
  Transmission Date: 20151125
  Serious: Yes (Other)
  Sender: FDA-Public Use
  Company Number: PHEH2015US012550

PATIENT
  Sex: Female
  Weight: 51.7 kg

DRUGS (3)
  1. LEVOTHYROXINE SODIUM. [Concomitant]
     Active Substance: LEVOTHYROXINE SODIUM
     Indication: PRODUCT USED FOR UNKNOWN INDICATION
     Dosage: 25 UG, QD
     Route: 065
  2. GILENYA [Suspect]
     Active Substance: FINGOLIMOD HYDROCHLORIDE
     Indication: RELAPSING-REMITTING MULTIPLE SCLEROSIS
     Dosage: 0.5 MG, QD
     Route: 065
     Dates: start: 201010
  3. INFLUENZA VACCINE [Concomitant]
     Active Substance: INFLUENZA VIRUS VACCINE
     Indication: IMMUNISATION
     Route: 065

REACTIONS (15)
  - Muscle spasticity [Unknown]
  - Pain in extremity [Unknown]
  - Gait disturbance [Unknown]
  - Paresis [Unknown]
  - Neurogenic bladder [Unknown]
  - Back pain [Unknown]
  - Muscle tone disorder [Unknown]
  - Arthralgia [Unknown]
  - Muscular weakness [Unknown]
  - Hyperreflexia [Unknown]
  - Progressive multiple sclerosis [Unknown]
  - Somnolence [Unknown]
  - Vitamin D deficiency [Unknown]
  - Motor neurone disease [Unknown]
  - Balance disorder [Unknown]
